FAERS Safety Report 8022923-7 (Version None)
Quarter: 2012Q1

REPORT INFORMATION
  Report Type: 
  Country: None (occurrence: None)
  Receive Date: 20120104
  Receipt Date: 20111226
  Transmission Date: 20120608
  Serious: Yes (Other)
  Sender: FDA-Public Use
  Company Number: DE-ASTRAZENECA-2011SE78777

PATIENT
  Age: 38 Year
  Sex: Female

DRUGS (3)
  1. DESFLURANE [Suspect]
     Indication: MAINTENANCE OF ANAESTHESIA
  2. FENTANYL [Suspect]
     Indication: GENERAL ANAESTHESIA
     Route: 065
  3. PROPOFOL [Suspect]
     Indication: GENERAL ANAESTHESIA
     Route: 042

REACTIONS (1)
  - HYPERTHERMIA MALIGNANT [None]
